FAERS Safety Report 5518001-9 (Version None)
Quarter: 2007Q4

REPORT INFORMATION
  Report Type: 
  Country: None (occurrence: None)
  Receive Date: 20071113
  Receipt Date: 20071030
  Transmission Date: 20080405
  Serious: Yes (Hospitalization)
  Sender: FDA-Public Use
  Company Number: 2007PO0160

PATIENT
  Age: 16 Year
  Sex: Female
  Weight: 47.6277 kg

DRUGS (1)
  1. PONSTEL [Suspect]
     Indication: PAIN IN EXTREMITY
     Dosage: PO
     Route: 048

REACTIONS (2)
  - MUSCULAR WEAKNESS [None]
  - PSYCHOSOMATIC DISEASE [None]
